FAERS Safety Report 11858058 (Version 1)
Quarter: 2015Q4

REPORT INFORMATION
  Report Type: Spontaneous
  Country: DE (occurrence: DE)
  Receive Date: 20151222
  Receipt Date: 20151222
  Transmission Date: 20160305
  Serious: Yes (Other)
  Sender: FDA-Public Use
  Company Number: DE-BAYER-2015-486959

PATIENT

DRUGS (4)
  1. ACETYLSALICYLIC ACID (} 100 MG) [Suspect]
     Active Substance: ASPIRIN
     Indication: PROPHYLAXIS
     Dosage: 81 MG, UNK
     Route: 064
  2. FOLATE SODIUM [Suspect]
     Active Substance: FOLATE SODIUM
     Dosage: 4 MG, UNK
     Route: 064
  3. FOLATE SODIUM [Suspect]
     Active Substance: FOLATE SODIUM
     Dosage: 4 MG, UNK
     Route: 064
  4. ACETYLSALICYLIC ACID (} 100 MG) [Suspect]
     Active Substance: ASPIRIN
     Indication: PROPHYLAXIS
     Dosage: 81 MG, UNK
     Route: 064

REACTIONS (4)
  - Neuroblastoma [None]
  - Foetal exposure during pregnancy [None]
  - Metastases to liver [None]
  - Catecholamines urine increased [None]
